FAERS Safety Report 13444437 (Version 1)
Quarter: 2017Q2

REPORT INFORMATION
  Report Type: Spontaneous
  Country: FR (occurrence: FR)
  Receive Date: 20170414
  Receipt Date: 20170414
  Transmission Date: 20170830
  Serious: Yes (Death, Hospitalization, Other)
  Sender: FDA-Public Use
  Company Number: FR-BRISTOL-MYERS SQUIBB COMPANY-BMS-2017-030421

PATIENT
  Age: 85 Year
  Sex: Male

DRUGS (5)
  1. STAGID [Concomitant]
     Active Substance: METFORMIN PAMOATE
     Indication: PRODUCT USED FOR UNKNOWN INDICATION
     Route: 065
  2. QUINAPRIL. [Concomitant]
     Active Substance: QUINAPRIL
     Indication: PRODUCT USED FOR UNKNOWN INDICATION
     Route: 065
  3. ELIQUIS [Suspect]
     Active Substance: APIXABAN
     Indication: CEREBROVASCULAR ACCIDENT PROPHYLAXIS
     Dosage: 1 DF, BID
     Route: 048
     Dates: end: 20170211
  4. DILTIAZEM. [Concomitant]
     Active Substance: DILTIAZEM
     Indication: PRODUCT USED FOR UNKNOWN INDICATION
     Route: 065
  5. FOLIC ACID. [Concomitant]
     Active Substance: FOLIC ACID
     Indication: PRODUCT USED FOR UNKNOWN INDICATION
     Route: 065

REACTIONS (8)
  - Cerebral haemorrhage [Fatal]
  - Thrombophlebitis [Unknown]
  - Hypernatraemia [Unknown]
  - Skull fracture [Unknown]
  - Arrhythmia [Unknown]
  - Thrombocytopenia [Unknown]
  - Fall [Unknown]
  - Tachypnoea [Unknown]

NARRATIVE: CASE EVENT DATE: 20170209
